FAERS Safety Report 8809003 (Version 1)
Quarter: 2012Q4

REPORT INFORMATION
  Report Type: 
  Country: US (occurrence: None)
  Receive Date: 20120920
  Receipt Date: 20120920
  Transmission Date: 20130627
  Serious: Yes (Hospitalization)
  Sender: FDA-Public Use
  Company Number: None

PATIENT
  Age: 85 Year
  Sex: Male
  Weight: 85 kg

DRUGS (2)
  1. ALFA 2 INTERFERON 2B [Suspect]
     Dates: end: 20120723
  2. PRAVASTATIN [Concomitant]

REACTIONS (1)
  - Ataxia [None]
